FAERS Safety Report 5792004-1 (Version None)
Quarter: 2008Q2

REPORT INFORMATION
  Report Type: 
  Country: None (occurrence: None)
  Receive Date: 20080626
  Receipt Date: 20080617
  Transmission Date: 20081010
  Serious: Yes (Death)
  Sender: FDA-Public Use
  Company Number: KR-SANOFI-SYNTHELABO-A01200806842

PATIENT
  Age: 60 Year
  Sex: Female

DRUGS (1)
  1. STILNOX CR [Suspect]
     Indication: DRUG USE FOR UNKNOWN INDICATION
     Dosage: UNK
     Route: 048

REACTIONS (2)
  - CYANOSIS [None]
  - DEATH [None]
